FAERS Safety Report 6294577-1 (Version None)
Quarter: 2009Q3

REPORT INFORMATION
  Report Type: 
  Country: None (occurrence: None)
  Receive Date: 20090803
  Receipt Date: 20090723
  Transmission Date: 20100115
  Serious: Yes (Hospitalization, Other)
  Sender: FDA-Public Use
  Company Number: TW-GENENTECH-287681

PATIENT
  Age: 60 Year
  Sex: Male

DRUGS (3)
  1. AVASTIN [Suspect]
     Indication: GLIOBLASTOMA
     Dosage: UNK UNK, UNK
     Route: 065
     Dates: start: 20080701
  2. TEMODAL [Suspect]
     Indication: GLIOBLASTOMA
     Dosage: UNK UNK, UNK
     Route: 065
     Dates: start: 20080101
  3. CAMPTOSAR [Suspect]
     Indication: GLIOBLASTOMA
     Dosage: UNK UNK, UNK
     Route: 065
     Dates: start: 20090101

REACTIONS (2)
  - COMA [None]
  - GLIOBLASTOMA [None]
